FAERS Safety Report 13677024 (Version 1)
Quarter: 2017Q2

REPORT INFORMATION
  Report Type: Spontaneous
  Country: US (occurrence: US)
  Receive Date: 20170621
  Receipt Date: 20170621
  Transmission Date: 20170830
  Serious: No
  Sender: FDA-Public Use
  Company Number: None

PATIENT
  Age: 68 Year
  Sex: Male

DRUGS (2)
  1. NEXAVAR [Suspect]
     Active Substance: SORAFENIB
     Indication: PERIPHERAL NERVE INJURY
     Dosage: 200MG AM 400MG PM BID ORAL
     Route: 048
     Dates: start: 20170112
  2. NEXAVAR [Suspect]
     Active Substance: SORAFENIB
     Indication: METASTASES TO BONE
     Dosage: 200MG AM 400MG PM BID ORAL
     Route: 048
     Dates: start: 20170112

REACTIONS (1)
  - Bronchitis [None]

NARRATIVE: CASE EVENT DATE: 20170601
